FAERS Safety Report 6203654-2 (Version None)
Quarter: 2009Q2

REPORT INFORMATION
  Report Type: 
  Country: None (occurrence: None)
  Receive Date: 20090522
  Receipt Date: 20090522
  Transmission Date: 20091009
  Serious: Yes (Other)
  Sender: FDA-Public Use
  Company Number: None

PATIENT
  Age: 45 Year
  Sex: Female
  Weight: 54.4316 kg

DRUGS (2)
  1. CYMBALTA [Suspect]
     Indication: DEPRESSION
     Dosage: 60 MG AT BEDTIME PO
     Route: 048
     Dates: start: 20080315, end: 20090518
  2. CYMBALTA [Suspect]
     Indication: NECK PAIN
     Dosage: 60 MG AT BEDTIME PO
     Route: 048
     Dates: start: 20080315, end: 20090518

REACTIONS (18)
  - COLD SWEAT [None]
  - DISCOMFORT [None]
  - DIZZINESS [None]
  - EATING DISORDER [None]
  - FEAR [None]
  - FEELING COLD [None]
  - FEELING JITTERY [None]
  - GASTRIC DISORDER [None]
  - GASTROINTESTINAL DISORDER [None]
  - HYPERHIDROSIS [None]
  - MEMORY IMPAIRMENT [None]
  - MENTAL DISORDER [None]
  - PAIN [None]
  - SELF-INJURIOUS IDEATION [None]
  - THINKING ABNORMAL [None]
  - TONGUE BLISTERING [None]
  - UNEVALUABLE EVENT [None]
  - WITHDRAWAL SYNDROME [None]
